FAERS Safety Report 13086819 (Version 1)
Quarter: 2017Q1

REPORT INFORMATION
  Report Type: Spontaneous
  Country: US (occurrence: US)
  Receive Date: 20170104
  Receipt Date: 20170104
  Transmission Date: 20170428
  Serious: Yes (Death, Other)
  Sender: FDA-Public Use
  Company Number: US-BRISTOL-MYERS SQUIBB COMPANY-BMS-2016-111421

PATIENT
  Sex: Female

DRUGS (1)
  1. WARFARIN SODIUM. [Suspect]
     Active Substance: WARFARIN SODIUM
     Indication: MULTIPLE SCLEROSIS
     Route: 065

REACTIONS (4)
  - Decubitus ulcer [Fatal]
  - Retroperitoneal haemorrhage [Unknown]
  - Osteomyelitis [Unknown]
  - Sepsis [Fatal]
